FAERS Safety Report 9767408 (Version 1)
Quarter: 2013Q4

REPORT INFORMATION
  Report Type: Report from Study
  Country: ES (occurrence: ES)
  Receive Date: 20131217
  Receipt Date: 20131217
  Transmission Date: 20140711
  Serious: Yes (Death)
  Sender: FDA-Public Use
  Company Number: ES-ASTELLAS-2013US013038

PATIENT
  Sex: 0

DRUGS (2)
  1. AMBISOME [Suspect]
     Indication: FUNGAL INFECTION
     Dosage: UNK
     Route: 042
  2. AMBISOME [Suspect]
     Indication: BLASTOMYCOSIS

REACTIONS (1)
  - Drug ineffective [Fatal]
